FAERS Safety Report 7656168 (Version 4)
Quarter: 2015Q1

REPORT INFORMATION
  Report Type: Spontaneous
  Country: US (occurrence: US)
  Receive Date: 20101104
  Receipt Date: 20150331
  Transmission Date: 20150721
  Serious: Yes (Hospitalization)
  Sender: FDA-Public Use
  Company Number: US-BAYER-201038725NA

PATIENT
  Age: 23 Year
  Sex: Female
  Weight: 81.63 kg

DRUGS (8)
  1. WELLBUTRIN SR [Concomitant]
     Active Substance: BUPROPION HYDROCHLORIDE
     Dosage: 200 MG, BID
  2. MELOXICAM. [Concomitant]
     Active Substance: MELOXICAM
     Indication: PAIN
     Dosage: 15 MG, ONCE A DAY AS NEEDED
  3. ROBAXIN [Concomitant]
     Active Substance: METHOCARBAMOL
     Indication: PAIN
     Dosage: 750 MG, THREE TIMES A DAY AS NEEDED
  4. DICYCLOMINE HCL [Concomitant]
     Active Substance: DICYCLOMINE HYDROCHLORIDE
     Indication: ABDOMINAL PAIN
     Dosage: 20 MG, FOUR TIMES A DAY AS NEEDED
  5. LO LOESTRIN FE [Concomitant]
     Active Substance: ETHINYL ESTRADIOL\NORETHINDRONE ACETATE
  6. MIRENA [Suspect]
     Active Substance: LEVONORGESTREL
     Indication: CONTRACEPTION
     Dosage: 20 MCG/24HR, CONT
     Route: 015
     Dates: start: 200603, end: 20101029
  7. XANAX [Concomitant]
     Active Substance: ALPRAZOLAM
     Indication: ANXIETY
     Dosage: 0.5 MG, ONCE A DAY AS NEEDED
  8. ATENOLOL. [Concomitant]
     Active Substance: ATENOLOL
     Dosage: 25 MG, BID

REACTIONS (15)
  - Internal injury [None]
  - Injury [None]
  - Device dislocation [None]
  - Depression [None]
  - Genital haemorrhage [None]
  - Anxiety [None]
  - Abdominal pain [None]
  - Emotional distress [None]
  - Uterine perforation [None]
  - Medical device discomfort [None]
  - Depressed mood [None]
  - Device issue [None]
  - Device dislocation [None]
  - Pelvic pain [None]
  - Fear [None]

NARRATIVE: CASE EVENT DATE: 200603
